FAERS Safety Report 4551695-3 (Version None)
Quarter: 2005Q1

REPORT INFORMATION
  Report Type: 
  Country: None (occurrence: None)
  Receive Date: 20050111
  Receipt Date: 20041229
  Transmission Date: 20050727
  Serious: Yes (Other)
  Sender: FDA-Public Use
  Company Number: 2004-118567-NL

PATIENT
  Sex: Female

DRUGS (2)
  1. NUVARING [Suspect]
     Indication: CONTRACEPTION
     Dosage: VAGINAL
     Route: 067
     Dates: start: 20030101, end: 20030708
  2. MACROBID [Concomitant]

REACTIONS (15)
  - APPLICATION SITE DISCOMFORT [None]
  - BLOOD PRESSURE INCREASED [None]
  - CAESAREAN SECTION [None]
  - CYSTITIS [None]
  - DYSPAREUNIA [None]
  - DYSURIA [None]
  - IMPAIRED HEALING [None]
  - KIDNEY INFECTION [None]
  - MEDICAL DEVICE DISCOMFORT [None]
  - MEDICAL DEVICE SITE REACTION [None]
  - MENSTRUAL DISCOMFORT [None]
  - PREGNANCY WITH CONTRACEPTIVE DEVICE [None]
  - THERAPY NON-RESPONDER [None]
  - VAGINAL CONTRACEPTIVE DEVICE COMPLICATION [None]
  - VULVOVAGINAL DISCOMFORT [None]
